FAERS Safety Report 8903362 (Version 2)
Quarter: 2012Q4

REPORT INFORMATION
  Report Type: 
  Country: ES (occurrence: ES)
  Receive Date: 20121113
  Receipt Date: 20121115
  Transmission Date: 20130627
  Serious: Yes (Hospitalization)
  Sender: FDA-Public Use
  Company Number: ES-009507513-1211ESP004918

PATIENT
  Age: 36 Year
  Sex: Male

DRUGS (5)
  1. REXER FLAS [Suspect]
     Indication: ANOREXIA NERVOSA
     Dosage: 30 mg, Once
     Route: 048
     Dates: start: 20120409, end: 20120429
  2. EUTIROX [Concomitant]
     Indication: HYPOTHYROIDISM
     Dosage: 25 (units unknown) (once)
     Route: 048
     Dates: start: 20120409
  3. IDALPREM [Concomitant]
     Indication: ANXIETY
     Route: 048
     Dates: start: 20120407
  4. ZYPREXA [Concomitant]
     Indication: CONDUCT DISORDER
     Route: 048
     Dates: start: 20120405, end: 20120408
  5. VALIUM [Concomitant]
     Indication: ANXIETY
     Route: 048
     Dates: start: 20120405, end: 20120413

REACTIONS (2)
  - Hepatitis [Recovered/Resolved]
  - Hepatitis [None]
